FAERS Safety Report 20495940 (Version 1)
Quarter: 2022Q1

REPORT INFORMATION
  Report Type: Spontaneous
  Country: JP (occurrence: JP)
  Receive Date: 20220221
  Receipt Date: 20220221
  Transmission Date: 20220423
  Serious: No
  Sender: FDA-Public Use
  Company Number: JP-GSKNCCC-Case-01423671_AE-54897

PATIENT

DRUGS (1)
  1. SOTROVIMAB [Suspect]
     Active Substance: SOTROVIMAB
     Dosage: ADMINISTERED ABOUT HALF THE DOSE
     Dates: start: 20220214

REACTIONS (1)
  - Infusion site extravasation [Unknown]
